FAERS Safety Report 8548409-9 (Version None)
Quarter: 2012Q3

REPORT INFORMATION
  Report Type: 
  Country: None (occurrence: None)
  Receive Date: 20120719
  Receipt Date: 20120719
  Transmission Date: 20120928
  Serious: Yes (Other)
  Sender: FDA-Public Use
  Company Number: None

PATIENT
  Age: 16 Year
  Sex: Male
  Weight: 63.5036 kg

DRUGS (1)
  1. CLEOCIN [Suspect]
     Indication: STAPHYLOCOCCAL INFECTION
     Dosage: 1 PILL 3 X DAY PO
     Route: 048
     Dates: start: 20120625, end: 20120705

REACTIONS (1)
  - CLOSTRIDIUM DIFFICILE COLITIS [None]
